FAERS Safety Report 4315025-4 (Version None)
Quarter: 2004Q1

REPORT INFORMATION
  Report Type: 
  Country: None (occurrence: None)
  Receive Date: 20040309
  Receipt Date: 20040303
  Transmission Date: 20041129
  Serious: Yes (Other)
  Sender: FDA-Public Use
  Company Number: AU_030706440

PATIENT
  Age: 73 Year
  Sex: Female
  Weight: 60 kg

DRUGS (4)
  1. EVISTA [Suspect]
     Indication: OSTEOPOROSIS
     Dosage: 60 MG/DAY
     Dates: start: 20000615, end: 20030706
  2. PROZAC [Suspect]
     Indication: DEPRESSION
     Dosage: 20 MG/3 DAY
     Dates: start: 19980101
  3. COVERSYL (PERINDOPRIL) [Concomitant]
  4. OROXINE (LEVOTHYROXINE SODIUM) [Concomitant]

REACTIONS (2)
  - BREAST CANCER RECURRENT [None]
  - MALIGNANT PLEURAL EFFUSION [None]
